FAERS Safety Report 5803337-4 (Version None)
Quarter: 2008Q3

REPORT INFORMATION
  Report Type: 
  Country: None (occurrence: None)
  Receive Date: 20080708
  Receipt Date: 20080630
  Transmission Date: 20090109
  Serious: Yes (Other)
  Sender: FDA-Public Use
  Company Number: US-ASTRAZENECA-2006UW03253

PATIENT
  Age: 39 Year
  Sex: Female
  Weight: 118.2 kg

DRUGS (4)
  1. SEROQUEL [Suspect]
     Indication: SLEEP DISORDER
     Route: 048
     Dates: start: 20021001, end: 20070201
  2. GEODON [Concomitant]
     Dates: start: 20050701, end: 20050801
  3. ZYPREXA/SYMBYAX [Concomitant]
     Dosage: 5 - 20 MG
     Dates: start: 20010501, end: 20051201
  4. METHADON HCL TAB [Concomitant]
     Dates: start: 20070101

REACTIONS (8)
  - BLOOD CHOLESTEROL INCREASED [None]
  - CARDIAC DISORDER [None]
  - HYPOTENSION [None]
  - HYSTERECTOMY [None]
  - PANCREATITIS [None]
  - RENAL STONE REMOVAL [None]
  - TYPE 2 DIABETES MELLITUS [None]
  - WEIGHT INCREASED [None]
